FAERS Safety Report 7957760-2 (Version None)
Quarter: 2011Q4

REPORT INFORMATION
  Report Type: 
  Country: None (occurrence: None)
  Receive Date: 20111205
  Receipt Date: 20111205
  Transmission Date: 20120403
  Serious: Yes (Hospitalization)
  Sender: FDA-Public Use
  Company Number: PHHO2010AU15481

PATIENT
  Sex: Female
  Weight: 56.4 kg

DRUGS (1)
  1. AFINITOR [Suspect]
     Indication: METASTATIC GASTRIC CANCER
     Dosage: 10 MG, QD
     Route: 048
     Dates: start: 20101007, end: 20101111

REACTIONS (10)
  - HEPATITIS [None]
  - DRUG INEFFECTIVE [None]
  - HEADACHE [None]
  - LIVER FUNCTION TEST ABNORMAL [None]
  - ABDOMINAL PAIN [None]
  - NAUSEA [None]
  - BACK PAIN [None]
  - NEOPLASM MALIGNANT [None]
  - JAUNDICE CHOLESTATIC [None]
  - VOMITING [None]
